FAERS Safety Report 25162398 (Version 1)
Quarter: 2025Q2

REPORT INFORMATION
  Report Type: Report from Study
  Country: CA (occurrence: CA)
  Receive Date: 20250404
  Receipt Date: 20250404
  Transmission Date: 20250716
  Serious: Yes (Hospitalization, Other)
  Sender: SANOFI AVENTIS
  Company Number: CA-SA-SAC20231213000946

PATIENT
  Age: 1 Year
  Sex: Female

DRUGS (8)
  1. ALGLUCOSIDASE ALFA [Suspect]
     Active Substance: ALGLUCOSIDASE ALFA
     Indication: Glycogen storage disease type II
     Dosage: 500 MG, QW
     Route: 041
     Dates: start: 20220609
  2. ALGLUCOSIDASE ALFA [Suspect]
     Active Substance: ALGLUCOSIDASE ALFA
     Dosage: 450 MG, QW
     Route: 041
  3. ALGLUCOSIDASE ALFA [Suspect]
     Active Substance: ALGLUCOSIDASE ALFA
     Dosage: 40 MG/KG, QW
     Route: 041
  4. ALGLUCOSIDASE ALFA [Suspect]
     Active Substance: ALGLUCOSIDASE ALFA
     Dosage: 550 MG, QOW
     Route: 041
  5. ALGLUCOSIDASE ALFA [Suspect]
     Active Substance: ALGLUCOSIDASE ALFA
     Dosage: 600 MG, QOW
     Route: 041
  6. VIT D [VITAMIN D NOS] [Concomitant]
  7. TOBRAMYCIN [Concomitant]
     Active Substance: TOBRAMYCIN
     Indication: Sepsis
     Route: 042
  8. MEROPENEM [Concomitant]
     Active Substance: MEROPENEM
     Indication: Sepsis
     Route: 042

REACTIONS (8)
  - Sepsis [Recovered/Resolved]
  - Pyrexia [Recovered/Resolved]
  - Pulmonary thrombosis [Recovering/Resolving]
  - Weight decreased [Recovered/Resolved]
  - Bacterial test positive [Not Recovered/Not Resolved]
  - Illness [Not Recovered/Not Resolved]
  - Inappropriate schedule of product administration [Unknown]
  - Off label use [Unknown]

NARRATIVE: CASE EVENT DATE: 20231204
